FAERS Safety Report 16239306 (Version 1)
Quarter: 2019Q2

REPORT INFORMATION
  Report Type: Spontaneous
  Country: US (occurrence: US)
  Receive Date: 20190425
  Receipt Date: 20190425
  Transmission Date: 20190711
  Serious: Yes (Other)
  Sender: FDA-Public Use
  Company Number: US-TEVA-2019-US-1041284

PATIENT
  Age: 18 Year
  Sex: Male

DRUGS (6)
  1. DOXORUBICIN [Suspect]
     Active Substance: DOXORUBICIN
     Indication: PRIMITIVE NEUROECTODERMAL TUMOUR
     Dosage: ADMINISTERED IN COMPRESSED 2-WEEK CYCLES (AS A PART OF VINCRISTINE, DOXORUBICIN AND CYCLOPHOSPHAM...
     Route: 065
  2. DEXRAZOXANE. [Concomitant]
     Active Substance: DEXRAZOXANE
     Indication: CARDIOVASCULAR EVENT PROPHYLAXIS
     Dosage: ADMINISTERED PRIOR TO EACH DOXORUBICIN INFUSION FOR CARDIOPROTECTION
     Route: 065
  3. IFOSFAMIDE. [Suspect]
     Active Substance: IFOSFAMIDE
     Indication: PRIMITIVE NEUROECTODERMAL TUMOUR
     Dosage: ADMINISTERED IN COMPRESSED 2-WEEK CYCLES, AND WITH IFOSFAMIDE (ETOPOSIDE AND IFOSFAMIDE REGIMEN)
     Route: 065
  4. CYCLOPHOSPHAMIDE. [Suspect]
     Active Substance: CYCLOPHOSPHAMIDE
     Indication: PRIMITIVE NEUROECTODERMAL TUMOUR
     Dosage: ADMINISTERED IN COMPRESSED 2-WEEK CYCLES (AS A PART OF VINCRISTINE, DOXORUBICIN AND CYCLOPHOSPHAM...
     Route: 065
  5. VINCRISTINE [Suspect]
     Active Substance: VINCRISTINE
     Indication: PRIMITIVE NEUROECTODERMAL TUMOUR
     Dosage: ADMINISTERED IN COMPRESSED 2-WEEK CYCLES (AS A PART OF VINCRISTINE, DOXORUBICIN AND CYCLOPHOSPHAM...
     Route: 065
  6. ETOPOSIDE. [Suspect]
     Active Substance: ETOPOSIDE
     Indication: PRIMITIVE NEUROECTODERMAL TUMOUR
     Dosage: ADMINISTERED IN COMPRESSED 2-WEEK CYCLES, AND WITH IFOSFAMIDE (ETOPOSIDE AND IFOSFAMIDE REGIMEN)
     Route: 065

REACTIONS (1)
  - Bone marrow failure [Unknown]
